FAERS Safety Report 21246362 (Version 1)
Quarter: 2022Q3

REPORT INFORMATION
  Report Type: Spontaneous
  Country: GB (occurrence: GB)
  Receive Date: 20220824
  Receipt Date: 20220824
  Transmission Date: 20221027
  Serious: Yes (Other)
  Sender: FDA-Public Use
  Company Number: GB-AUROBINDO-AUR-APL-2022-033118

PATIENT
  Sex: Female

DRUGS (1)
  1. CARVEDILOL [Suspect]
     Active Substance: CARVEDILOL
     Indication: Product used for unknown indication
     Dosage: 12.5 MILLIGRAM(AFTER GOING FROM 6.25MG TO 12.5MG)
     Route: 065

REACTIONS (6)
  - Oral discomfort [Unknown]
  - Tongue ulceration [Unknown]
  - Taste disorder [Unknown]
  - Epistaxis [Unknown]
  - Fatigue [Unknown]
  - Dizziness [Unknown]
